FAERS Safety Report 6045432-3 (Version None)
Quarter: 2009Q1

REPORT INFORMATION
  Report Type: 
  Country: None (occurrence: None)
  Receive Date: 20090116
  Receipt Date: 20090116
  Transmission Date: 20090719
  Serious: Yes (Other)
  Sender: FDA-Public Use
  Company Number: None

PATIENT
  Sex: Female
  Weight: 54.4316 kg

DRUGS (1)
  1. MIRENA [Suspect]
     Indication: CONTRACEPTION
     Dosage: 20 MG DAILY VAG
     Route: 067
     Dates: start: 20030115, end: 20081120

REACTIONS (33)
  - ABNORMAL SENSATION IN EYE [None]
  - ALOPECIA [None]
  - ANXIETY [None]
  - APATHY [None]
  - ASTHENIA [None]
  - BACK PAIN [None]
  - BLINDNESS TRANSIENT [None]
  - BLINDNESS UNILATERAL [None]
  - COUGH [None]
  - DEPRESSION [None]
  - DISTURBANCE IN ATTENTION [None]
  - DIZZINESS POSTURAL [None]
  - EXAGGERATED STARTLE RESPONSE [None]
  - FATIGUE [None]
  - FOREIGN BODY SENSATION IN EYES [None]
  - HEADACHE [None]
  - HYPOAESTHESIA [None]
  - IMPAIRED DRIVING ABILITY [None]
  - IRRITABILITY [None]
  - IUCD COMPLICATION [None]
  - LOSS OF LIBIDO [None]
  - NASAL CONGESTION [None]
  - NERVOUSNESS [None]
  - NIGHT BLINDNESS [None]
  - PALPITATIONS [None]
  - PHOTOPHOBIA [None]
  - POLLAKIURIA [None]
  - SWOLLEN TONGUE [None]
  - TEMPERATURE INTOLERANCE [None]
  - TONGUE DISORDER [None]
  - TREMOR [None]
  - VISION BLURRED [None]
  - WEIGHT DECREASED [None]
